FAERS Safety Report 7580630-9 (Version None)
Quarter: 2011Q2

REPORT INFORMATION
  Report Type: 
  Country: None (occurrence: None)
  Receive Date: 20110629
  Receipt Date: 20110620
  Transmission Date: 20111010
  Serious: Yes (Death, Hospitalization)
  Sender: FDA-Public Use
  Company Number: US-ALEXION-A201100736

PATIENT
  Sex: Female

DRUGS (2)
  1. SOLIRIS [Suspect]
     Indication: PAROXYSMAL NOCTURNAL HAEMOGLOBINURIA
     Dosage: UNK
     Route: 042
     Dates: end: 20110322
  2. SOLIRIS [Suspect]
     Dosage: UNK
     Dates: start: 20110101

REACTIONS (10)
  - PLATELET COUNT DECREASED [None]
  - TRANSFUSION REACTION [None]
  - DEATH [None]
  - COUGH [None]
  - PYREXIA [None]
  - LUNG DISORDER [None]
  - PNEUMONIA [None]
  - GAIT DISTURBANCE [None]
  - ASTHENIA [None]
  - DYSPNOEA [None]
